FAERS Safety Report 9596241 (Version 1)
Quarter: 2013Q4

REPORT INFORMATION
  Report Type: Spontaneous
  Country: FR (occurrence: FR)
  Receive Date: 20131004
  Receipt Date: 20131004
  Transmission Date: 20140711
  Serious: Yes (Hospitalization)
  Sender: FDA-Public Use
  Company Number: FR-JNJFOC-20131001419

PATIENT
  Age: 55 Year
  Sex: Male
  Weight: 50 kg

DRUGS (1)
  1. IXPRIM [Suspect]
     Indication: ABDOMINAL PAIN
     Route: 048
     Dates: start: 20121007, end: 20121009

REACTIONS (1)
  - Hepatocellular injury [Recovered/Resolved]
